FAERS Safety Report 18367513 (Version 1)
Quarter: 2020Q4

REPORT INFORMATION
  Report Type: Report from Study
  Country: ES (occurrence: ES)
  Receive Date: 20201009
  Receipt Date: 20201009
  Transmission Date: 20210114
  Serious: Yes (Death, Other)
  Sender: FDA-Public Use
  Company Number: ES-JNJFOC-20201011225

PATIENT
  Age: 61 Year
  Sex: Female

DRUGS (1)
  1. DARATUMUMAB [Suspect]
     Active Substance: DARATUMUMAB
     Indication: PLASMA CELL MYELOMA
     Dosage: FOR EIGHT WEEKS (CYCLE 1)
     Route: 042

REACTIONS (3)
  - Neutropenia [Unknown]
  - Infection [Fatal]
  - Intestinal perforation [Fatal]
